FAERS Safety Report 8464544-8 (Version None)
Quarter: 2012Q2

REPORT INFORMATION
  Report Type: 
  Country: None (occurrence: None)
  Receive Date: 20120323
  Receipt Date: 20111121
  Transmission Date: 20120825
  Serious: Yes (Life-Threatening, Hospitalization, Other)
  Sender: FDA-Public Use
  Company Number: 163-21880-11101903

PATIENT
  Age: 78 Year
  Sex: Female

DRUGS (6)
  1. SPIRONOLACTONE [Concomitant]
  2. REVLIMID [Suspect]
     Indication: MULTIPLE MYELOMA
     Dosage: 10 MG, DAILY DAYS 1-21, PO
     Route: 048
     Dates: start: 20110821, end: 20111010
  3. LANTUS [Concomitant]
  4. NORVASC [Concomitant]
  5. LASIX [Concomitant]
  6. LOTENSIN [Concomitant]

REACTIONS (6)
  - HAEMATOCRIT DECREASED [None]
  - DERMATITIS BULLOUS [None]
  - CELLULITIS [None]
  - DIARRHOEA [None]
  - PLATELET COUNT DECREASED [None]
  - RASH [None]
